FAERS Safety Report 18377045 (Version 6)
Quarter: 2021Q3

REPORT INFORMATION
  Report Type: Spontaneous
  Country: US (occurrence: US)
  Receive Date: 20201013
  Receipt Date: 20210811
  Transmission Date: 20211014
  Serious: No
  Sender: FDA-Public Use
  Company Number: US-PFIZER INC-2020385704

PATIENT
  Age: 7 Year
  Sex: Male
  Weight: 20.87 kg

DRUGS (1)
  1. GENOTROPIN [Suspect]
     Active Substance: SOMATROPIN
     Indication: HYPOPITUITARISM
     Dosage: 0.4 MG, DAILY
     Dates: start: 20200123

REACTIONS (4)
  - Device issue [Unknown]
  - Device use error [Unknown]
  - Device breakage [Unknown]
  - Poor quality device used [Unknown]

NARRATIVE: CASE EVENT DATE: 20201003
